FAERS Safety Report 22683347 (Version 2)
Quarter: 2023Q4

REPORT INFORMATION
  Report Type: Report from Study
  Country: GB (occurrence: GB)
  Receive Date: 20230707
  Receipt Date: 20231013
  Transmission Date: 20240109
  Serious: Yes (Death, Hospitalization)
  Sender: FDA-Public Use
  Company Number: GB-SA-SAC20230706000424

PATIENT

DRUGS (17)
  1. CEMIPLIMAB [Suspect]
     Active Substance: CEMIPLIMAB
     Indication: Penis carcinoma metastatic
     Dosage: 350 MG, Q3W
     Route: 042
     Dates: start: 20230516, end: 20230608
  2. CISPLATIN [Concomitant]
     Active Substance: CISPLATIN
     Indication: Penile cancer
     Dosage: 210 MG, Q3W
     Route: 042
     Dates: start: 20230516, end: 20230608
  3. FLUOROURACIL [Concomitant]
     Active Substance: FLUOROURACIL
     Indication: Penile cancer
     Dosage: 2000 MG, Q3W
     Route: 042
     Dates: start: 20230516, end: 20230611
  4. APREPITANT [Concomitant]
     Active Substance: APREPITANT
     Indication: Penile cancer
     Dosage: 80 MG, 1X
     Route: 048
     Dates: start: 20230517, end: 20230519
  5. APREPITANT [Concomitant]
     Active Substance: APREPITANT
     Dosage: 125 MG, 1X
     Route: 048
     Dates: start: 20230516, end: 20230516
  6. METOCLOPRAMIDE [Concomitant]
     Active Substance: METOCLOPRAMIDE
     Indication: Penile cancer
     Dosage: 10 MG, TID
     Route: 048
     Dates: start: 20230516, end: 20230520
  7. CHLORTETRACYCLINE\CLOBETASONE\NYSTATIN [Concomitant]
     Active Substance: CHLORTETRACYCLINE\CLOBETASONE\NYSTATIN
     Indication: Product used for unknown indication
     Dosage: UNK (APPLY THINLY TO AFFECTED AREA ONCE DAILY)
     Dates: start: 20230512
  8. POLIHEXANIDE [Concomitant]
     Active Substance: POLIHEXANIDE
     Indication: Product used for unknown indication
     Dosage: UNK
     Route: 065
     Dates: start: 20230502
  9. KLINIDERM ALGINATE [Concomitant]
     Indication: Product used for unknown indication
     Dosage: UNK
     Route: 065
     Dates: start: 20230512
  10. BECLOMETHASONE DIPROPIONATE [Concomitant]
     Active Substance: BECLOMETHASONE DIPROPIONATE
     Indication: Rhinitis
     Dosage: 50 MG, BID
     Dates: start: 20230320
  11. CARBOXYMETHYLCELLULOSE SODIUM [Concomitant]
     Active Substance: CARBOXYMETHYLCELLULOSE SODIUM
     Indication: Product used for unknown indication
     Dosage: UNK
     Route: 065
     Dates: start: 20230120
  12. AMOXICILLIN\CLAVULANATE POTASSIUM [Concomitant]
     Active Substance: AMOXICILLIN\CLAVULANATE POTASSIUM
     Indication: Product used for unknown indication
     Dosage: 1 DF, TID
     Route: 065
     Dates: start: 20230227
  13. HYDROXOCOBALAMIN [Concomitant]
     Active Substance: HYDROXOCOBALAMIN
     Indication: Vitamin B12 deficiency
     Dosage: 1 MG, Q3M
     Route: 065
     Dates: start: 20230220
  14. AROVI [Concomitant]
     Indication: Product used for unknown indication
     Dosage: 1 DF, BID
     Route: 065
     Dates: start: 20230220
  15. SOLIFENACIN [Concomitant]
     Active Substance: SOLIFENACIN
     Indication: Product used for unknown indication
     Dosage: UNK DF, QD (ONE TO TWO TABLETS)
     Route: 065
     Dates: start: 20230131
  16. SOLIFENACIN [Concomitant]
     Active Substance: SOLIFENACIN
     Dosage: 1 DF, QD UNTIL REVIEWED BY HOSPITAL
     Route: 065
     Dates: start: 20230126
  17. TRIMETHOPRIM [Concomitant]
     Active Substance: TRIMETHOPRIM
     Indication: Product used for unknown indication
     Dosage: 1 DF, BID
     Route: 065
     Dates: start: 20230131

REACTIONS (2)
  - Cardiac arrest [Fatal]
  - Mobility decreased [Not Recovered/Not Resolved]

NARRATIVE: CASE EVENT DATE: 20230613
